FAERS Safety Report 4871176-7 (Version None)
Quarter: 2005Q4

REPORT INFORMATION
  Report Type: 
  Country: None (occurrence: None)
  Receive Date: 20051229
  Receipt Date: 20051208
  Transmission Date: 20060501
  Serious: Yes (Other)
  Sender: FDA-Public Use
  Company Number: BG200512002602

PATIENT
  Age: 43 Year
  Sex: Female

DRUGS (2)
  1. ZYPREXA [Suspect]
     Indication: SCHIZOPHRENIA
     Dosage: 15 MG, DAILY (1/D), ORAL
     Route: 048
     Dates: start: 20051111, end: 20051129
  2. DEPAKENE [Concomitant]

REACTIONS (3)
  - OEDEMA [None]
  - RASH ERYTHEMATOUS [None]
  - THROMBOCYTOPENIA [None]
